FAERS Safety Report 14448540 (Version 2)
Quarter: 2021Q4

REPORT INFORMATION
  Report Type: Spontaneous
  Country: GB (occurrence: GB)
  Receive Date: 20180126
  Receipt Date: 20211201
  Transmission Date: 20220303
  Serious: Yes (Other)
  Sender: FDA-Public Use
  Company Number: GB-NOVOPROD-582342

PATIENT
  Age: 65 Year
  Sex: Female

DRUGS (5)
  1. VAGIFEM [Suspect]
     Active Substance: ESTRADIOL
     Indication: Vulvovaginal pain
     Dosage: WEEK ONE USED IT EVERYDAY
     Route: 065
     Dates: start: 201711
  2. VAGIFEM [Suspect]
     Active Substance: ESTRADIOL
     Dosage: WEEK TWO SHE USED IT EVERY OTHER DAY
     Route: 065
  3. VAGIFEM [Suspect]
     Active Substance: ESTRADIOL
     Dosage: EVERY DAY DOSE
     Route: 065
  4. VAGIFEM [Suspect]
     Active Substance: ESTRADIOL
     Dosage: WEEK FOUR WAS TWICE WEEKLY
     Route: 065
  5. VAGIFEM [Suspect]
     Active Substance: ESTRADIOL
     Dosage: WEEK THREE WAS ONCE WEEKLY
     Route: 065

REACTIONS (2)
  - Hypertension [Unknown]
  - Inappropriate schedule of product administration [Unknown]

NARRATIVE: CASE EVENT DATE: 20171101
